FAERS Safety Report 6790755-3 (Version None)
Quarter: 2010Q2

REPORT INFORMATION
  Report Type: 
  Country: None (occurrence: None)
  Receive Date: 20100624
  Receipt Date: 20100616
  Transmission Date: 20101027
  Serious: Yes (Hospitalization)
  Sender: FDA-Public Use
  Company Number: ES-AMGEN-QUU419198

PATIENT
  Sex: Male
  Weight: 89 kg

DRUGS (7)
  1. NEULASTA [Suspect]
     Indication: CHEMOTHERAPY
     Route: 058
     Dates: start: 20100401
  2. SEPTRIN [Concomitant]
     Route: 048
     Dates: start: 20100210
  3. ALLOPURINOL [Concomitant]
     Route: 048
     Dates: start: 20100210
  4. FLUDARABINE [Concomitant]
  5. CYCLOPHOSPHAMIDE [Concomitant]
  6. SEGURIL [Concomitant]
  7. UNSPECIFIED MEDICATION [Concomitant]

REACTIONS (4)
  - BONE PAIN [None]
  - MYALGIA [None]
  - RASH [None]
  - RASH GENERALISED [None]
